FAERS Safety Report 14651277 (Version 2)
Quarter: 2018Q1

REPORT INFORMATION
  Report Type: Spontaneous
  Country: US (occurrence: US)
  Receive Date: 20180316
  Receipt Date: 20180326
  Transmission Date: 20180509
  Serious: No
  Sender: FDA-Public Use
  Company Number: US-009507513-1803USA006641

PATIENT
  Age: 25 Year
  Sex: Female
  Weight: 111.11 kg

DRUGS (1)
  1. NEXPLANON [Suspect]
     Active Substance: ETONOGESTREL
     Indication: CONTRACEPTION
     Dosage: 1 IMPLANT IN THE RIGHT ARM
     Route: 059
     Dates: start: 20171215

REACTIONS (4)
  - Anxiety [Unknown]
  - Anger [Unknown]
  - Mood swings [Unknown]
  - Depression [Unknown]

NARRATIVE: CASE EVENT DATE: 20171215
